FAERS Safety Report 17242170 (Version 1)
Quarter: 2020Q1

REPORT INFORMATION
  Report Type: Report from Study
  Country: US (occurrence: US)
  Receive Date: 20200107
  Receipt Date: 20200107
  Transmission Date: 20200409
  Serious: Yes (Death)
  Sender: FDA-Public Use
  Company Number: US-ROCHE-2513204

PATIENT

DRUGS (9)
  1. PERJETA [Suspect]
     Active Substance: PERTUZUMAB
     Indication: BREAST CANCER FEMALE
     Dosage: ON 13/SEP/2019, THE PATIENT RECEIVED THERAPY WITH PERTUZUMAB VIAL, 420 MG.
     Route: 065
     Dates: start: 20180601
  2. PERJETA [Suspect]
     Active Substance: PERTUZUMAB
     Indication: METASTASIS
  3. NAVELBINE [Concomitant]
     Active Substance: VINORELBINE TARTRATE
  4. KADCYLA [Suspect]
     Active Substance: ADO-TRASTUZUMAB EMTANSINE
     Indication: METASTASIS
  5. HERCEPTIN [Suspect]
     Active Substance: TRASTUZUMAB
     Indication: METASTASIS
     Dosage: ON 13/SEP/2019, THE PATIENT RECEIVED THERAPY WITH TRASTUZUMAB VIAL, 420 MG.
     Route: 065
     Dates: start: 20180601
  6. HERCEPTIN [Suspect]
     Active Substance: TRASTUZUMAB
     Indication: BREAST CANCER FEMALE
     Route: 065
  7. KADCYLA [Suspect]
     Active Substance: ADO-TRASTUZUMAB EMTANSINE
     Indication: BREAST CANCER FEMALE
     Route: 065
     Dates: start: 20180601
  8. TAXOTERE [Concomitant]
     Active Substance: DOCETAXEL
  9. CARBOPLATIN. [Concomitant]
     Active Substance: CARBOPLATIN

REACTIONS (1)
  - Death [Fatal]
